FAERS Safety Report 9479517 (Version 1)
Quarter: 2013Q3

REPORT INFORMATION
  Report Type: Spontaneous
  Country: US (occurrence: US)
  Receive Date: 20130827
  Receipt Date: 20130827
  Transmission Date: 20140515
  Serious: Yes (Hospitalization)
  Sender: FDA-Public Use
  Company Number: US-ROCHE-1264968

PATIENT
  Age: 44 Year
  Sex: Female

DRUGS (1)
  1. BEVACIZUMAB [Suspect]
     Indication: OVARIAN EPITHELIAL CANCER
     Route: 065
     Dates: end: 20110714

REACTIONS (2)
  - Wound dehiscence [Recovered/Resolved]
  - Abdominal hernia [Recovered/Resolved]
